FAERS Safety Report 10488813 (Version 1)
Quarter: 2014Q3

REPORT INFORMATION
  Report Type: Spontaneous
  Country: US (occurrence: None)
  Receive Date: 20140815
  Receipt Date: 20140815
  Transmission Date: 20150326
  Serious: Yes (Other)
  Sender: FDA-Public Use
  Company Number: ADR-2012-02121

PATIENT
  Sex: Male

DRUGS (4)
  1. FENTANYL INTRATHECAL [Suspect]
     Active Substance: FENTANYL
  2. BUPIVACAINE INTRATHECAL [Suspect]
     Active Substance: BUPIVACAINE
  3. CLONIDINE. [Suspect]
     Active Substance: CLONIDINE
  4. BACLOFEN INTRATHECAL [Suspect]
     Active Substance: BACLOFEN
     Indication: PAIN

REACTIONS (4)
  - Drug withdrawal syndrome [None]
  - Pain [None]
  - Abasia [None]
  - Unevaluable event [None]
